FAERS Safety Report 7378561-2 (Version None)
Quarter: 2011Q1

REPORT INFORMATION
  Report Type: 
  Country: None (occurrence: None)
  Receive Date: 20110328
  Receipt Date: 20110322
  Transmission Date: 20110831
  Serious: Yes (Other)
  Sender: FDA-Public Use
  Company Number: GB-PFIZER INC-2011063855

PATIENT
  Sex: Male
  Weight: 35.4 kg

DRUGS (4)
  1. SEROQUEL [Interacting]
     Indication: SCHIZOAFFECTIVE DISORDER
     Dosage: 300 MG, 2X/DAY
     Route: 048
     Dates: start: 20100101
  2. AMOXICILLIN [Interacting]
     Dosage: 500 MG, 2X/DAY
     Route: 048
  3. METRONIDAZOLE [Suspect]
     Dosage: 400 MG, 2X/DAY
  4. SEROQUEL [Interacting]
     Dosage: 800 MG DAILY

REACTIONS (9)
  - MENTAL DISORDER [None]
  - ACUTE PSYCHOSIS [None]
  - DELUSION [None]
  - DRUG INTERACTION [None]
  - INTENTIONAL OVERDOSE [None]
  - HALLUCINATION, AUDITORY [None]
  - DEPRESSED MOOD [None]
  - SUICIDAL IDEATION [None]
  - HALLUCINATION [None]
